FAERS Safety Report 10698035 (Version 1)
Quarter: 2015Q1

REPORT INFORMATION
  Report Type: Spontaneous
  Country: US (occurrence: None)
  Receive Date: 20150107
  Receipt Date: 20150107
  Transmission Date: 20150721
  Serious: Yes (Hospitalization)
  Sender: FDA-Public Use
  Company Number: None

PATIENT
  Age: 66 Year
  Sex: Male
  Weight: 124.2 kg

DRUGS (1)
  1. TECHNETIUM TC-99M MPI MDP [Suspect]
     Active Substance: TECHNETIUM TC-99M MEDRONATE
     Indication: DIAGNOSTIC PROCEDURE
     Dosage: 11.48, ONCE, IV
     Route: 042
     Dates: start: 20141209, end: 20141209

REACTIONS (5)
  - Vomiting [None]
  - Hypotension [None]
  - Nausea [None]
  - Syncope [None]
  - Hyperhidrosis [None]

NARRATIVE: CASE EVENT DATE: 20141209
